FAERS Safety Report 7109957-1 (Version None)
Quarter: 2010Q4

REPORT INFORMATION
  Report Type: 
  Country: None (occurrence: None)
  Receive Date: 20101118
  Receipt Date: 20101102
  Transmission Date: 20110411
  Serious: Yes (Other)
  Sender: FDA-Public Use
  Company Number: US-BAYER-201031772NA

PATIENT
  Sex: Female
  Weight: 86 kg

DRUGS (4)
  1. YASMIN [Suspect]
     Indication: CONTRACEPTION
     Route: 065
     Dates: start: 20041201, end: 20070101
  2. BREATHING MEDS [Concomitant]
  3. POTASSIUM CHLORIDE [Concomitant]
  4. NSAID'S [Concomitant]

REACTIONS (2)
  - BILIARY DYSKINESIA [None]
  - GALLBLADDER INJURY [None]
